FAERS Safety Report 23066463 (Version 1)
Quarter: 2023Q4

REPORT INFORMATION
  Report Type: Spontaneous
  Country: CN (occurrence: CN)
  Receive Date: 20231015
  Receipt Date: 20231015
  Transmission Date: 20240110
  Serious: Yes (Hospitalization, Other)
  Sender: FDA-Public Use
  Company Number: CN-GLAXOSMITHKLINE-CNCH2023APC048349

PATIENT
  Weight: 57 kg

DRUGS (2)
  1. VOLTAREN [Suspect]
     Active Substance: DICLOFENAC SODIUM
     Indication: Intervertebral disc protrusion
     Dosage: 75 MG, QD
     Route: 048
     Dates: start: 20230723, end: 20230930
  2. VOLTAREN [Suspect]
     Active Substance: DICLOFENAC SODIUM
     Indication: Pain
     Dosage: UNK
     Route: 065

REACTIONS (5)
  - Melaena [Unknown]
  - Sinus tachycardia [Unknown]
  - Faeces discoloured [Unknown]
  - Abnormal faeces [Unknown]
  - Anaemia [Unknown]

NARRATIVE: CASE EVENT DATE: 20230923
